FAERS Safety Report 15167034 (Version 2)
Quarter: 2018Q3

REPORT INFORMATION
  Report Type: Spontaneous
  Country: GB (occurrence: GB)
  Receive Date: 20180719
  Receipt Date: 20180830
  Transmission Date: 20181010
  Serious: Yes (Hospitalization)
  Sender: FDA-Public Use
  Company Number: PHHY2018GB042998

PATIENT
  Age: 62 Year
  Sex: Female

DRUGS (2)
  1. METHOTREXATE. [Suspect]
     Active Substance: METHOTREXATE
     Indication: RHEUMATOID ARTHRITIS
     Dosage: UNK
     Route: 065
  2. TOCILIZUMAB. [Suspect]
     Active Substance: TOCILIZUMAB
     Indication: RHEUMATOID ARTHRITIS
     Dosage: UNK
     Route: 058

REACTIONS (11)
  - Intervertebral discitis [Recovered/Resolved]
  - Acute kidney injury [Recovered/Resolved]
  - Joint swelling [Unknown]
  - Bacterial infection [Recovered/Resolved]
  - Zoonotic bacterial infection [Recovered/Resolved]
  - Vomiting [Unknown]
  - Spinal cord oedema [Recovered/Resolved]
  - Diarrhoea [Unknown]
  - Septic arthritis streptobacillus [Recovered/Resolved]
  - Back pain [Unknown]
  - Arthritis bacterial [Recovered/Resolved]
